FAERS Safety Report 22189129 (Version 6)
Quarter: 2023Q2

REPORT INFORMATION
  Report Type: Spontaneous
  Country: FR (occurrence: FR)
  Receive Date: 20230410
  Receipt Date: 20230620
  Transmission Date: 20230722
  Serious: Yes (Hospitalization, Other)
  Sender: FDA-Public Use
  Company Number: FR-BIOGARAN-B23000551

PATIENT
  Age: 38 Year
  Sex: Female

DRUGS (69)
  1. AMISULPRIDE [Suspect]
     Active Substance: AMISULPRIDE
     Indication: Product used for unknown indication
     Dosage: 50 MILLIGRAM, ONCE A DAY
     Route: 065
  2. AMISULPRIDE [Suspect]
     Active Substance: AMISULPRIDE
     Dosage: 50 MILLIGRAM, ONCE A DAY
     Route: 065
     Dates: start: 20220422, end: 20220422
  3. AMISULPRIDE [Suspect]
     Active Substance: AMISULPRIDE
     Dosage: 50 MILLIGRAM, ONCE A DAY
     Route: 065
     Dates: end: 20220422
  4. ARIPIPRAZOLE [Interacting]
     Active Substance: ARIPIPRAZOLE
     Indication: Personality disorder
     Dosage: 5 MILLIGRAM, ONCE A DAY
     Route: 065
     Dates: start: 20220610, end: 20220611
  5. ARIPIPRAZOLE [Interacting]
     Active Substance: ARIPIPRAZOLE
     Indication: Impulsive behaviour
     Dosage: 10 MILLIGRAM, ONCE A DAY
     Route: 065
     Dates: start: 20220612, end: 20220612
  6. ARIPIPRAZOLE [Interacting]
     Active Substance: ARIPIPRAZOLE
     Dosage: 15 MILLIGRAM, ONCE A DAY
     Route: 065
     Dates: start: 20220613, end: 20220623
  7. ARIPIPRAZOLE [Interacting]
     Active Substance: ARIPIPRAZOLE
     Dosage: 30 MILLIGRAM, ONCE A DAY
     Route: 065
     Dates: start: 20220624, end: 20220705
  8. ARIPIPRAZOLE [Interacting]
     Active Substance: ARIPIPRAZOLE
     Dosage: 30 MILLIGRAM, ONCE A DAY
     Route: 065
     Dates: start: 20220622, end: 20220622
  9. ARIPIPRAZOLE [Interacting]
     Active Substance: ARIPIPRAZOLE
     Dosage: 30 MILLIGRAM, ONCE A DAY
     Route: 065
     Dates: start: 20220624, end: 20220626
  10. ARIPIPRAZOLE [Interacting]
     Active Substance: ARIPIPRAZOLE
     Dosage: 15 MILLIGRAM, ONCE A DAY
     Route: 065
     Dates: start: 20220613, end: 20220613
  11. ARIPIPRAZOLE [Interacting]
     Active Substance: ARIPIPRAZOLE
     Dosage: UNK
     Route: 065
  12. CYAMEMAZINE [Suspect]
     Active Substance: CYAMEMAZINE
     Indication: Sedation
     Dosage: 150 MILLIGRAM, ONCE A DAY
     Route: 065
     Dates: start: 20220422, end: 20220423
  13. CYAMEMAZINE [Suspect]
     Active Substance: CYAMEMAZINE
     Dosage: 150 MILLIGRAM, ONCE A DAY
     Route: 065
     Dates: start: 20220613
  14. CYAMEMAZINE [Suspect]
     Active Substance: CYAMEMAZINE
     Dosage: 150 MILLIGRAM, ONCE A DAY
     Route: 065
     Dates: start: 20220608, end: 20220608
  15. CYAMEMAZINE [Suspect]
     Active Substance: CYAMEMAZINE
     Dosage: 150 MILLIGRAM, ONCE A DAY
     Route: 065
     Dates: start: 20220605, end: 20220605
  16. CYAMEMAZINE [Suspect]
     Active Substance: CYAMEMAZINE
     Dosage: 150 MILLIGRAM, ONCE A DAY
     Route: 065
     Dates: start: 20220426, end: 20220426
  17. CYAMEMAZINE [Suspect]
     Active Substance: CYAMEMAZINE
     Dosage: 150 MILLIGRAM, ONCE A DAY
     Route: 065
     Dates: start: 20220528, end: 20220528
  18. LAMOTRIGINE [Interacting]
     Active Substance: LAMOTRIGINE
     Indication: Personality disorder
     Dosage: 25 MILLIGRAM, ONCE A DAY
     Route: 065
     Dates: start: 20220608, end: 20220622
  19. LAMOTRIGINE [Interacting]
     Active Substance: LAMOTRIGINE
     Indication: Impulsive behaviour
     Dosage: 50 MILLIGRAM, ONCE A DAY
     Route: 065
     Dates: start: 20220623, end: 20220626
  20. LAMOTRIGINE [Interacting]
     Active Substance: LAMOTRIGINE
     Dosage: 75 MILLIGRAM, ONCE A DAY
     Route: 065
     Dates: start: 20220701, end: 20220705
  21. LAMOTRIGINE [Interacting]
     Active Substance: LAMOTRIGINE
     Dosage: 25 MILLIGRAM, ONCE A DAY
     Route: 065
     Dates: start: 20220610, end: 20220613
  22. LAMOTRIGINE [Interacting]
     Active Substance: LAMOTRIGINE
     Dosage: 25 MILLIGRAM, ONCE A DAY
     Route: 065
     Dates: start: 20220608, end: 20220608
  23. LAMOTRIGINE [Interacting]
     Active Substance: LAMOTRIGINE
     Dosage: 75 MILLIGRAM, ONCE A DAY
     Route: 065
     Dates: start: 20220622, end: 20220622
  24. MIRTAZAPINE [Suspect]
     Active Substance: MIRTAZAPINE
     Indication: Depressive symptom
     Dosage: 15 MILLIGRAM, ONCE A DAY
     Route: 065
  25. MIRTAZAPINE [Suspect]
     Active Substance: MIRTAZAPINE
     Indication: Insomnia
     Dosage: 7.5 MILLIGRAM, ONCE A DAY
     Route: 065
     Dates: start: 20220610, end: 20220611
  26. MIRTAZAPINE [Suspect]
     Active Substance: MIRTAZAPINE
     Indication: Major depression
     Dosage: 15 MILLIGRAM, ONCE A DAY
     Route: 065
     Dates: start: 20220612, end: 20220622
  27. MIRTAZAPINE [Suspect]
     Active Substance: MIRTAZAPINE
     Dosage: 30 MILLIGRAM, ONCE A DAY
     Route: 065
     Dates: start: 20220623, end: 20220624
  28. MIRTAZAPINE [Suspect]
     Active Substance: MIRTAZAPINE
     Dosage: 15 MILLIGRAM, ONCE A DAY
     Route: 065
     Dates: start: 2021, end: 2022
  29. OLANZAPINE [Suspect]
     Active Substance: OLANZAPINE
     Indication: Major depression
     Dosage: 10 MILLIGRAM, ONCE A DAY
     Route: 065
  30. OLANZAPINE [Suspect]
     Active Substance: OLANZAPINE
     Dosage: 10 MILLIGRAM, ONCE A DAY
     Route: 065
     Dates: start: 20220706, end: 20220706
  31. OLANZAPINE [Suspect]
     Active Substance: OLANZAPINE
     Dosage: 20 MILLIGRAM, ONCE A DAY
     Route: 065
     Dates: start: 20220727, end: 20220826
  32. OLANZAPINE [Suspect]
     Active Substance: OLANZAPINE
     Dosage: 10 MILLIGRAM, ONCE A DAY
     Route: 065
     Dates: start: 2021, end: 2022
  33. OLANZAPINE [Suspect]
     Active Substance: OLANZAPINE
     Dosage: 10 MILLIGRAM, ONCE A DAY
     Route: 065
  34. PAROXETINE [Suspect]
     Active Substance: PAROXETINE
     Indication: Depressive symptom
     Dosage: 20 MILLIGRAM, ONCE A DAY
     Route: 065
     Dates: start: 20220423, end: 20220423
  35. PAROXETINE [Suspect]
     Active Substance: PAROXETINE
     Dosage: 40 MILLIGRAM, ONCE A DAY
     Route: 065
     Dates: start: 20220426, end: 20220610
  36. PAROXETINE [Suspect]
     Active Substance: PAROXETINE
     Dosage: 20 MILLIGRAM, ONCE A DAY
     Route: 065
     Dates: start: 20220611, end: 20220612
  37. PAROXETINE [Suspect]
     Active Substance: PAROXETINE
     Dosage: 10 MILLIGRAM, ONCE A DAY
     Route: 065
     Dates: start: 20220613, end: 20220625
  38. PAROXETINE [Suspect]
     Active Substance: PAROXETINE
     Dosage: 40 MILLIGRAM, ONCE A DAY
     Route: 065
     Dates: start: 20220608, end: 20220608
  39. PAROXETINE [Suspect]
     Active Substance: PAROXETINE
     Dosage: 40 MILLIGRAM, ONCE A DAY
     Route: 065
     Dates: start: 20220610, end: 20220610
  40. PAROXETINE [Suspect]
     Active Substance: PAROXETINE
     Dosage: 40 MILLIGRAM, ONCE A DAY
     Route: 065
     Dates: start: 20220426, end: 20220426
  41. PAROXETINE [Suspect]
     Active Substance: PAROXETINE
     Dosage: UNK
     Route: 065
  42. QUETIAPINE [Suspect]
     Active Substance: QUETIAPINE
     Indication: Product used for unknown indication
     Dosage: 400 MILLIGRAM, ONCE A DAY
     Route: 065
     Dates: start: 20220422, end: 20220426
  43. QUETIAPINE [Suspect]
     Active Substance: QUETIAPINE
     Dosage: 400 MILLIGRAM, ONCE A DAY
     Route: 065
  44. QUETIAPINE [Suspect]
     Active Substance: QUETIAPINE
     Dosage: 300 MILLIGRAM, ONCE A DAY
     Route: 065
     Dates: start: 20220528, end: 20220528
  45. QUETIAPINE [Suspect]
     Active Substance: QUETIAPINE
     Dosage: 400 MILLIGRAM, ONCE A DAY
     Route: 065
  46. QUETIAPINE [Suspect]
     Active Substance: QUETIAPINE
     Dosage: 400 MILLIGRAM, ONCE A DAY
     Route: 065
     Dates: start: 202203, end: 20220605
  47. ZOPICLONE [Interacting]
     Active Substance: ZOPICLONE
     Indication: Sedation
     Dosage: 7.5 MILLIGRAM, ONCE A DAY
     Route: 065
     Dates: start: 20220422, end: 20220423
  48. ZOPICLONE [Interacting]
     Active Substance: ZOPICLONE
     Dosage: 7.5 MILLIGRAM, ONCE A DAY
     Route: 065
     Dates: start: 20220727, end: 20220727
  49. ZOPICLONE [Interacting]
     Active Substance: ZOPICLONE
     Dosage: 7.5 MILLIGRAM, ONCE A DAY
     Route: 065
     Dates: start: 20220622, end: 20220626
  50. ZOPICLONE [Interacting]
     Active Substance: ZOPICLONE
     Dosage: 7.5 MILLIGRAM, ONCE A DAY
     Route: 065
     Dates: start: 20220705, end: 20220706
  51. ZOPICLONE [Interacting]
     Active Substance: ZOPICLONE
     Dosage: 7.5 MILLIGRAM, ONCE A DAY
     Route: 065
     Dates: start: 20220605, end: 20220605
  52. ZOPICLONE [Interacting]
     Active Substance: ZOPICLONE
     Dosage: 7.5 MILLIGRAM, ONCE A DAY
     Route: 065
     Dates: start: 20220608, end: 20220608
  53. ZOPICLONE [Interacting]
     Active Substance: ZOPICLONE
     Dosage: 7.5 MILLIGRAM, ONCE A DAY
     Route: 065
     Dates: start: 20220610, end: 20220613
  54. ZOPICLONE [Interacting]
     Active Substance: ZOPICLONE
     Dosage: 7.5 MILLIGRAM, ONCE A DAY
     Route: 065
     Dates: start: 20220528, end: 20220528
  55. ZOPICLONE [Interacting]
     Active Substance: ZOPICLONE
     Dosage: 7.5 MILLIGRAM, ONCE A DAY
     Route: 065
     Dates: start: 20220426, end: 20220426
  56. ZOPICLONE [Interacting]
     Active Substance: ZOPICLONE
     Dosage: 7.5 MILLIGRAM, ONCE A DAY
     Route: 065
     Dates: start: 20220701, end: 20220701
  57. ZOPICLONE [Interacting]
     Active Substance: ZOPICLONE
     Dosage: UNK
     Route: 065
  58. DIAZEPAM [Interacting]
     Active Substance: DIAZEPAM
     Indication: Sedation
     Dosage: 30 MILLIGRAM, ONCE A DAY
     Route: 065
     Dates: start: 20220422, end: 20220423
  59. DIAZEPAM [Interacting]
     Active Substance: DIAZEPAM
     Dosage: 30 MILLIGRAM, ONCE A DAY
     Route: 065
     Dates: start: 20220608, end: 20220608
  60. DIAZEPAM [Interacting]
     Active Substance: DIAZEPAM
     Dosage: 30 MILLIGRAM, ONCE A DAY
     Route: 065
     Dates: start: 20220727, end: 20220727
  61. DIAZEPAM [Interacting]
     Active Substance: DIAZEPAM
     Dosage: 30 MILLIGRAM, ONCE A DAY
     Route: 065
     Dates: start: 20220528, end: 20220528
  62. DIAZEPAM [Interacting]
     Active Substance: DIAZEPAM
     Dosage: 30 MILLIGRAM, ONCE A DAY
     Route: 065
     Dates: start: 20220610, end: 20220613
  63. DIAZEPAM [Interacting]
     Active Substance: DIAZEPAM
     Dosage: 30 MILLIGRAM, ONCE A DAY
     Route: 065
     Dates: start: 20220622, end: 20220626
  64. DIAZEPAM [Interacting]
     Active Substance: DIAZEPAM
     Dosage: 30 MILLIGRAM, ONCE A DAY
     Route: 065
     Dates: start: 20220426, end: 20220426
  65. DIAZEPAM [Interacting]
     Active Substance: DIAZEPAM
     Dosage: 30 MILLIGRAM, ONCE A DAY
     Route: 065
     Dates: start: 20220701, end: 20220701
  66. DIAZEPAM [Interacting]
     Active Substance: DIAZEPAM
     Dosage: 30 MILLIGRAM, ONCE A DAY
     Route: 065
     Dates: start: 20220605, end: 20220605
  67. DIAZEPAM [Interacting]
     Active Substance: DIAZEPAM
     Dosage: 30 MILLIGRAM, ONCE A DAY
     Route: 065
     Dates: start: 20220705, end: 20220706
  68. NEXPLANON [Suspect]
     Active Substance: ETONOGESTREL
     Indication: Contraceptive implant
     Dosage: UNK
     Route: 065
     Dates: start: 2021
  69. ETONOGESTREL [Concomitant]
     Active Substance: ETONOGESTREL
     Indication: Product used for unknown indication
     Dosage: UNK
     Route: 065

REACTIONS (19)
  - Agitation [Recovered/Resolved]
  - Affect lability [Recovered/Resolved]
  - Abnormal behaviour [Recovered/Resolved]
  - Confusional state [Recovered/Resolved]
  - Condition aggravated [Recovered/Resolved]
  - Delirium [Recovered/Resolved]
  - Disorganised speech [Recovered/Resolved]
  - Hallucination, visual [Recovered/Resolved]
  - Insomnia [Recovered/Resolved]
  - Suicidal ideation [Recovered/Resolved]
  - Depressive symptom [Recovered/Resolved]
  - Delusion [Recovered/Resolved]
  - Impulsive behaviour [Recovered/Resolved]
  - Thinking abnormal [Unknown]
  - Weight increased [Unknown]
  - Dystonia [Unknown]
  - Drug interaction [Recovered/Resolved]
  - Drug ineffective [Unknown]
  - Product use in unapproved indication [Unknown]

NARRATIVE: CASE EVENT DATE: 20220528
